FAERS Safety Report 6124706-1 (Version None)
Quarter: 2009Q1

REPORT INFORMATION
  Report Type: 
  Country: None (occurrence: None)
  Receive Date: 20090319
  Receipt Date: 20090311
  Transmission Date: 20090719
  Serious: No
  Sender: FDA-Public Use
  Company Number: PHEH2009US02549

PATIENT
  Sex: Female

DRUGS (3)
  1. TASIGNA [Suspect]
     Dosage: UNK
     Dates: start: 20080601
  2. AVELOX [Interacting]
  3. VERAPAMIL [Interacting]

REACTIONS (3)
  - DRUG INTERACTION [None]
  - FATIGUE [None]
  - MALAISE [None]
